FAERS Safety Report 17195679 (Version 1)
Quarter: 2019Q4

REPORT INFORMATION
  Report Type: Spontaneous
  Country: US (occurrence: US)
  Receive Date: 20191224
  Receipt Date: 20191224
  Transmission Date: 20200122
  Serious: No
  Sender: FDA-Public Use
  Company Number: US-TEVA-2019-US-1157254

PATIENT
  Sex: Female

DRUGS (13)
  1. CLOTRIMAZOLE. [Concomitant]
     Active Substance: CLOTRIMAZOLE
  2. COPAXONE [Suspect]
     Active Substance: GLATIRAMER ACETATE
     Indication: MULTIPLE SCLEROSIS
     Dosage: COPAXONE 40MG THRICE A WEEK
     Route: 058
     Dates: start: 20160202
  3. LISINOPRIL. [Concomitant]
     Active Substance: LISINOPRIL
  4. GLIMEPIRIDE. [Concomitant]
     Active Substance: GLIMEPIRIDE
  5. SPRYCEL [Concomitant]
     Active Substance: DASATINIB
  6. ASPIRIN  81 [Concomitant]
     Active Substance: ASPIRIN
  7. ESTRADIOL. [Concomitant]
     Active Substance: ESTRADIOL
  8. METFORMIN [Concomitant]
     Active Substance: METFORMIN HYDROCHLORIDE
  9. MULTIVITAMIN [Concomitant]
     Active Substance: VITAMINS
  10. BENZONATATE. [Concomitant]
     Active Substance: BENZONATATE
  11. CALCIFEROL [Concomitant]
  12. CALCIUM 800 [Concomitant]
  13. TRAZODONE [Concomitant]
     Active Substance: TRAZODONE HYDROCHLORIDE

REACTIONS (1)
  - Rash [Not Recovered/Not Resolved]
